FAERS Safety Report 26090311 (Version 1)
Quarter: 2025Q4

REPORT INFORMATION
  Report Type: Other
  Country: EU (occurrence: EU)
  Receive Date: 20251126
  Receipt Date: 20251126
  Transmission Date: 20260118
  Serious: Yes (Hospitalization, Other)
  Sender: IBSA INSTITUT BIOCHIMIQUE
  Company Number: EU-IBSA PHARMA INC.-2025IBS000598

PATIENT

DRUGS (4)
  1. LEVOTHYROXINE SODIUM [Suspect]
     Active Substance: LEVOTHYROXINE SODIUM
     Indication: Cutaneous T-cell lymphoma
     Dosage: UNK
     Dates: start: 20251020, end: 20251028
  2. BEXAROTENE [Suspect]
     Active Substance: BEXAROTENE
     Indication: Cutaneous T-cell lymphoma
     Dosage: 5 DOSAGE FORM, ONCE
     Dates: start: 20251020, end: 20251028
  3. FENOFIBRATE [Suspect]
     Active Substance: FENOFIBRATE
     Indication: Cutaneous T-cell lymphoma
     Dosage: UNK
     Dates: start: 20251020, end: 20251028
  4. MELATONIN [Suspect]
     Active Substance: MELATONIN
     Indication: Cutaneous T-cell lymphoma
     Dosage: UNK
     Dates: start: 202509, end: 20251030

REACTIONS (2)
  - Drug reaction with eosinophilia and systemic symptoms [Recovered/Resolved]
  - Off label use [Unknown]

NARRATIVE: CASE EVENT DATE: 20251020
